FAERS Safety Report 8847187 (Version 3)
Quarter: 2013Q1

REPORT INFORMATION
  Report Type: Spontaneous
  Country: US (occurrence: US)
  Receive Date: 20121018
  Receipt Date: 20130129
  Transmission Date: 20140127
  Serious: Yes (Other)
  Sender: FDA-Public Use
  Company Number: US-TEVA-364159USA

PATIENT
  Age: 58 Year
  Sex: Male

DRUGS (1)
  1. COPAXONE [Suspect]
     Indication: MULTIPLE SCLEROSIS
     Route: 058
     Dates: start: 20010626

REACTIONS (10)
  - Injection site reaction [Recovered/Resolved]
  - Injection site reaction [Recovering/Resolving]
  - Impaired healing [Recovered/Resolved]
  - Neck pain [Unknown]
  - Infection [Recovering/Resolving]
  - Fungal skin infection [Recovering/Resolving]
  - Vomiting [Recovered/Resolved]
  - Injection site oedema [Recovered/Resolved]
  - Injection site discolouration [Recovering/Resolving]
  - Injection site pain [Recovered/Resolved]
